FAERS Safety Report 6446976-2 (Version None)
Quarter: 2009Q4

REPORT INFORMATION
  Report Type: 
  Country: None (occurrence: None)
  Receive Date: 20091110
  Receipt Date: 20090715
  Transmission Date: 20100525
  Serious: No
  Sender: FDA-Public Use
  Company Number: 1000007513

PATIENT
  Sex: Male

DRUGS (2)
  1. SAVELLA [Suspect]
     Dosage: 12.5 MG (12.5 MG, 1 IN 1 D), ORAL
     Route: 048
     Dates: start: 20090708, end: 20090708
  2. SAVELLA [Suspect]
     Dosage: 50 MG 925 MG, 2 IN 1 D), ORAL
     Route: 048
     Dates: start: 20090711, end: 20090714

REACTIONS (4)
  - DIZZINESS [None]
  - HYPERHIDROSIS [None]
  - NAUSEA [None]
  - VOMITING [None]
